FAERS Safety Report 10622908 (Version 1)
Quarter: 2014Q4

REPORT INFORMATION
  Report Type: Spontaneous
  Country: IT (occurrence: IT)
  Receive Date: 20141203
  Receipt Date: 20141203
  Transmission Date: 20150529
  Serious: Yes (Hospitalization)
  Sender: FDA-Public Use
  Company Number: IT-TEVA-525473ISR

PATIENT

DRUGS (19)
  1. CIPROFLOXACINA [Suspect]
     Active Substance: CIPROFLOXACIN
  2. NIMESULIDE [Suspect]
     Active Substance: NIMESULIDE
  3. FLUCONAZOLO BAXTER [Suspect]
     Active Substance: FLUCONAZOLE
  4. SULFAMETHOXAZOLE-TRIMETHOPRIM (SMZ) [Suspect]
     Active Substance: SULFAMETHOXAZOLE\TRIMETHOPRIM
  5. LAMOTRIGINA [Suspect]
     Active Substance: LAMOTRIGINE
  6. CEFTRIAXONE. [Suspect]
     Active Substance: CEFTRIAXONE
  7. IDROSSICLOROCHINA [Suspect]
     Active Substance: HYDROXYCHLOROQUINE
  8. KETOPROFENE [Suspect]
     Active Substance: KETOPROFEN
  9. DICLOFENAC [Suspect]
     Active Substance: DICLOFENAC
  10. SODIO VALPROATO [Suspect]
     Active Substance: VALPROATE SODIUM
  11. DIPHENYLHYDANTOIN [Suspect]
     Active Substance: PHENYTOIN
  12. CARBAMAZEPINA [Suspect]
     Active Substance: CARBAMAZEPINE
  13. KETOROLAC [Suspect]
     Active Substance: KETOROLAC\KETOROLAC TROMETHAMINE
  14. FENOBARBITALE [Suspect]
     Active Substance: PHENOBARBITAL
  15. VANCOMICINA [Suspect]
     Active Substance: VANCOMYCIN
  16. PARACETAMOLO [Suspect]
     Active Substance: ACETAMINOPHEN
  17. ALLOPURINOLO [Suspect]
     Active Substance: ALLOPURINOL
  18. LEVOFLOXACINA [Suspect]
     Active Substance: LEVOFLOXACIN
  19. AMOXICILLINA [Suspect]
     Active Substance: AMOXICILLIN

REACTIONS (4)
  - Stevens-Johnson syndrome [Unknown]
  - Acute generalised exanthematous pustulosis [Unknown]
  - Drug reaction with eosinophilia and systemic symptoms [Unknown]
  - Toxic epidermal necrolysis [Unknown]
